FAERS Safety Report 6210911-2 (Version None)
Quarter: 2009Q2

REPORT INFORMATION
  Report Type: 
  Country: None (occurrence: None)
  Receive Date: 20090601
  Receipt Date: 20090521
  Transmission Date: 20091009
  Serious: No
  Sender: FDA-Public Use
  Company Number: PHHY2009JP15905

PATIENT
  Sex: Female
  Weight: 84 kg

DRUGS (3)
  1. DIOVAN [Suspect]
     Indication: ESSENTIAL HYPERTENSION
     Dosage: 80 MG, QD
     Route: 048
     Dates: start: 20090204, end: 20090223
  2. PERDIPINE [Concomitant]
     Indication: HYPERTENSION
     Dosage: 40 MG, UNK
     Route: 048
  3. EUGLUCON [Concomitant]
     Indication: DIABETES MELLITUS
     Dosage: 2.5 MG/DAY
     Route: 048

REACTIONS (1)
  - MENORRHAGIA [None]
